FAERS Safety Report 25831481 (Version 1)
Quarter: 2025Q3

REPORT INFORMATION
  Report Type: Spontaneous
  Country: US (occurrence: US)
  Receive Date: 20250922
  Receipt Date: 20250922
  Transmission Date: 20251020
  Serious: Yes (Other)
  Sender: GLAND PHARMA LTD
  Company Number: US-GLANDPHARMA-US-2025GLNLIT01843

PATIENT
  Age: 6 Day
  Sex: Male

DRUGS (2)
  1. ESMOLOL HYDROCHLORIDE [Suspect]
     Active Substance: ESMOLOL HYDROCHLORIDE
     Indication: Accelerated idioventricular rhythm
     Route: 065
  2. ESMOLOL HYDROCHLORIDE [Suspect]
     Active Substance: ESMOLOL HYDROCHLORIDE
     Route: 065

REACTIONS (3)
  - Neonatal hypotension [Recovering/Resolving]
  - Drug ineffective for unapproved indication [Unknown]
  - Product use issue [Unknown]
